FAERS Safety Report 18131446 (Version 3)
Quarter: 2020Q4

REPORT INFORMATION
  Report Type: Report from Study
  Country: DE (occurrence: DE)
  Receive Date: 20200810
  Receipt Date: 20201201
  Transmission Date: 20210113
  Serious: Yes (Hospitalization, Other)
  Sender: FDA-Public Use
  Company Number: DE-BRISTOL-MYERS SQUIBB COMPANY-BMS-2020-041774

PATIENT
  Age: 73 Year
  Sex: Female

DRUGS (3)
  1. NIVOLUMAB [Suspect]
     Active Substance: NIVOLUMAB
     Indication: MALIGNANT MELANOMA
     Dosage: 480 MILLIGRAM, Q4WK
     Route: 065
     Dates: start: 20200228, end: 20200511
  2. NIVOLUMAB [Suspect]
     Active Substance: NIVOLUMAB
     Dosage: 240 MILLIGRAM, Q2WK
     Route: 042
     Dates: start: 20200622
  3. LEVOTHYROXINE SODIUM. [Concomitant]
     Active Substance: LEVOTHYROXINE SODIUM
     Indication: PRODUCT USED FOR UNKNOWN INDICATION
     Dosage: UNK
     Route: 065

REACTIONS (14)
  - Aspartate aminotransferase increased [Unknown]
  - Spinal stenosis [Unknown]
  - Influenza like illness [Recovered/Resolved]
  - Myalgia [Recovering/Resolving]
  - Sinus bradycardia [Recovered/Resolved]
  - Blood creatine phosphokinase increased [Unknown]
  - Thyroiditis [Recovering/Resolving]
  - Dizziness [Recovering/Resolving]
  - Hypothyroidism [Unknown]
  - Hypoparathyroidism [Recovering/Resolving]
  - Dysphonia [Recovered/Resolved]
  - Peripheral sensory neuropathy [Recovering/Resolving]
  - Colitis [Recovered/Resolved]
  - Diverticular perforation [Unknown]

NARRATIVE: CASE EVENT DATE: 202004
